FAERS Safety Report 7110917-5 (Version None)
Quarter: 2010Q4

REPORT INFORMATION
  Report Type: 
  Country: None (occurrence: None)
  Receive Date: 20101118
  Receipt Date: 20101116
  Transmission Date: 20110411
  Serious: Yes (Hospitalization)
  Sender: FDA-Public Use
  Company Number: GXKR2010DE03014

PATIENT
  Sex: Male
  Weight: 82 kg

DRUGS (4)
  1. SIMVAHEXAL (NGX) [Suspect]
     Dosage: 60 MG, QD
     Route: 048
     Dates: start: 20070701
  2. ACETYLSALICYLIC ACID (NGX) [Suspect]
     Dosage: 100 MG, QD
     Route: 048
     Dates: start: 20070101
  3. METOPROLOL (NGX) [Suspect]
     Dosage: 100 MG, QD
     Route: 048
     Dates: start: 20070701
  4. DIOVAN HCT [Suspect]
     Dosage: 1 DF, QD
     Dates: start: 20070701

REACTIONS (2)
  - ANGINA PECTORIS [None]
  - DYSPNOEA [None]
